FAERS Safety Report 10161042 (Version 1)
Quarter: 2014Q2

REPORT INFORMATION
  Report Type: Spontaneous
  Country: US (occurrence: US)
  Receive Date: 20140508
  Receipt Date: 20140508
  Transmission Date: 20141212
  Serious: No
  Sender: FDA-Public Use
  Company Number: US-PFIZER INC-2014125002

PATIENT
  Age: 57 Year
  Sex: Female
  Weight: 74.83 kg

DRUGS (5)
  1. XELJANZ [Suspect]
     Indication: RHEUMATOID ARTHRITIS
     Dosage: 5 MG, 2X/DAY
     Route: 048
     Dates: start: 201309, end: 201404
  2. PROGESTERONE [Concomitant]
     Dosage: UNK
  3. METHYLPREDNISOLONE [Concomitant]
     Dosage: UNK
  4. RANITIDINE [Concomitant]
     Dosage: UNK
  5. VYTORIN [Concomitant]
     Dosage: UNK

REACTIONS (1)
  - Drug ineffective [Unknown]
